FAERS Safety Report 23452778 (Version 1)
Quarter: 2024Q1

REPORT INFORMATION
  Report Type: Spontaneous
  Country: RU (occurrence: RU)
  Receive Date: 20240129
  Receipt Date: 20240129
  Transmission Date: 20240410
  Serious: Yes (Other)
  Sender: FDA-Public Use
  Company Number: RU-009507513-2401RUS015297

PATIENT
  Age: 48 Year
  Sex: Female

DRUGS (3)
  1. PEMBROLIZUMAB [Suspect]
     Active Substance: PEMBROLIZUMAB
     Indication: Renal cancer
     Dosage: 200 MILLIGRAM, Q3W
     Route: 042
     Dates: start: 202308
  2. LENVATINIB MESYLATE [Suspect]
     Active Substance: LENVATINIB MESYLATE
     Indication: Renal cancer
     Dosage: 20 MILLIGRAM, QD
     Route: 048
     Dates: start: 202308, end: 20240115
  3. LENVATINIB MESYLATE [Suspect]
     Active Substance: LENVATINIB MESYLATE
     Dosage: 10 MILLIGRAM, QD
     Route: 048
     Dates: start: 20240116

REACTIONS (5)
  - Autoimmune thyroiditis [Unknown]
  - Thrombocytopenia [Unknown]
  - Rash [Unknown]
  - Secondary hypertension [Unknown]
  - Haematuria [Unknown]

NARRATIVE: CASE EVENT DATE: 20240115
